FAERS Safety Report 8990043 (Version 1)
Quarter: 2012Q4

REPORT INFORMATION
  Report Type: 
  Country: BR (occurrence: BR)
  Receive Date: 20121228
  Receipt Date: 20121228
  Transmission Date: 20130627
  Serious: Yes (Other)
  Sender: FDA-Public Use
  Company Number: BR-AMGEN-BRASP2012083289

PATIENT
  Age: 55 Year
  Sex: Male
  Weight: 75 kg

DRUGS (6)
  1. ENBREL [Suspect]
     Indication: PRODUCT USED FOR UNKNOWN INDICATION
     Dosage: 50 mg, once weekly
     Route: 058
     Dates: start: 2011, end: 201209
  2. METHOTREXATE [Concomitant]
     Indication: ANKYLOSING SPONDYLITIS
     Dosage: UNK
     Dates: start: 2008, end: 201211
  3. PANTOPRAZOLE [Concomitant]
     Indication: GASTRITIS
     Dosage: UNK
     Dates: start: 1992
  4. PANTOPRAZOLE [Concomitant]
     Indication: OESOPHAGITIS
     Dosage: UNK
  5. NEXIUM                             /01479302/ [Concomitant]
     Indication: GASTRITIS
     Dosage: UNK
     Dates: start: 201211
  6. NEXIUM                             /01479302/ [Concomitant]
     Indication: OESOPHAGITIS
     Dosage: UNK

REACTIONS (6)
  - Immunodeficiency [Unknown]
  - Weight decreased [Unknown]
  - Gastrointestinal disorder [Unknown]
  - Headache [Unknown]
  - Dizziness [Unknown]
  - Hypersensitivity [Unknown]
